FAERS Safety Report 23403036 (Version 3)
Quarter: 2024Q1

REPORT INFORMATION
  Report Type: Spontaneous
  Country: US (occurrence: US)
  Receive Date: 20240115
  Receipt Date: 20240130
  Transmission Date: 20240410
  Serious: No
  Sender: FDA-Public Use
  Company Number: US-ABBVIE-5583283

PATIENT
  Sex: Female
  Weight: 58 kg

DRUGS (2)
  1. CARAFATE [Suspect]
     Active Substance: SUCRALFATE
     Indication: Dyspepsia
     Dosage: STRENGTH: 10ML, 2 TEASPOON A DAY
     Route: 065
  2. VITAMIN B12 [Suspect]
     Active Substance: CYANOCOBALAMIN
     Indication: Dyspepsia
     Route: 065

REACTIONS (3)
  - Body height decreased [Not Recovered/Not Resolved]
  - Vitamin B12 abnormal [Unknown]
  - Weight decreased [Not Recovered/Not Resolved]
